FAERS Safety Report 7357509-0 (Version None)
Quarter: 2011Q1

REPORT INFORMATION
  Report Type: 
  Country: None (occurrence: None)
  Receive Date: 20110314
  Receipt Date: 20110314
  Transmission Date: 20110831
  Serious: No
  Sender: FDA-Public Use
  Company Number: None

PATIENT
  Age: 67 Year
  Sex: Female
  Weight: 82.5547 kg

DRUGS (1)
  1. LISINOPRIL [Suspect]
     Indication: BLOOD PRESSURE
     Dosage: 2 1/2 MG 1 TIME A DAY
     Dates: start: 20110301, end: 20110312

REACTIONS (3)
  - INFLUENZA [None]
  - FEELING ABNORMAL [None]
  - RESPIRATORY DISORDER [None]
